FAERS Safety Report 8345757-2 (Version None)
Quarter: 2012Q2

REPORT INFORMATION
  Report Type: 
  Country: None (occurrence: None)
  Receive Date: 20120508
  Receipt Date: 20120425
  Transmission Date: 20120825
  Serious: Yes (Hospitalization, Other)
  Sender: FDA-Public Use
  Company Number: US-ELI_LILLY_AND_COMPANY-US201102003667

PATIENT
  Sex: Female

DRUGS (8)
  1. FORTEO [Suspect]
     Dosage: 20 UG, QD
  2. FORTEO [Suspect]
     Dosage: 20 UG, DAILY (1/D)
  3. FORTEO [Suspect]
     Indication: OSTEOPOROSIS
     Dosage: 20 UG, QD
     Dates: start: 20110202
  4. ANTIHYPERTENSIVES [Concomitant]
     Indication: HYPERTENSION
  5. FORTEO [Suspect]
     Dosage: 20 UG, QD
     Dates: end: 20120101
  6. CELEBREX [Concomitant]
  7. VITAMIN D [Concomitant]
     Dosage: 50000 U, WEEKLY (1/W)
  8. FORTEO [Suspect]
     Dosage: 20 UG, QD

REACTIONS (13)
  - ARTHRITIS [None]
  - HYPOAESTHESIA [None]
  - GAIT DISTURBANCE [None]
  - PALPITATIONS [None]
  - DIZZINESS [None]
  - CARDIAC DISORDER [None]
  - BONE DENSITY DECREASED [None]
  - MUSCULOSKELETAL PAIN [None]
  - APHASIA [None]
  - ARTHRALGIA [None]
  - CEREBROVASCULAR ACCIDENT [None]
  - BONE PAIN [None]
  - HEADACHE [None]
